FAERS Safety Report 4831770-6 (Version None)
Quarter: 2005Q4

REPORT INFORMATION
  Report Type: 
  Country: None (occurrence: None)
  Receive Date: 20051118
  Receipt Date: 20051011
  Transmission Date: 20060501
  Serious: Yes (Death, Hospitalization)
  Sender: FDA-Public Use
  Company Number: US-MERCK-0510USA06626

PATIENT
  Age: 75 Year
  Sex: Male
  Weight: 68 kg

DRUGS (17)
  1. VIOXX [Suspect]
     Indication: ARTHRITIS
     Route: 048
     Dates: start: 19991011, end: 20000914
  2. VIOXX [Suspect]
     Route: 048
     Dates: start: 20010910, end: 20021010
  3. NEURONTIN [Concomitant]
     Route: 065
  4. LOPRESSOR [Concomitant]
     Route: 065
  5. MECLIZINE [Concomitant]
     Route: 065
  6. PLAVIX [Concomitant]
     Route: 065
  7. ISOSORBIDE [Concomitant]
     Route: 065
  8. MOTRIN [Concomitant]
     Route: 065
  9. PREDNISONE [Concomitant]
     Route: 065
  10. HYDROCORTISONE [Concomitant]
     Route: 065
  11. NORVASC [Concomitant]
     Route: 065
  12. HYTRIN [Concomitant]
     Route: 065
  13. FLOMAX (MORNIFLUMATE) [Concomitant]
     Route: 065
  14. PREDNISOLONE [Concomitant]
     Route: 065
  15. [COMPOSITION UNSPECIFIED] [Concomitant]
     Route: 065
  16. VEETIDS [Concomitant]
     Route: 065
  17. ACETAMINOPHEN AND CODEINE [Concomitant]
     Route: 065

REACTIONS (5)
  - ACUTE RESPIRATORY FAILURE [None]
  - CEREBROVASCULAR ACCIDENT [None]
  - CHRONIC OBSTRUCTIVE PULMONARY DISEASE [None]
  - DYSPNOEA [None]
  - HIP FRACTURE [None]
